FAERS Safety Report 13072227 (Version 2)
Quarter: 2017Q1

REPORT INFORMATION
  Report Type: Report from Study
  Country: DE (occurrence: DE)
  Receive Date: 20161229
  Receipt Date: 20170102
  Transmission Date: 20170428
  Serious: Yes (Death)
  Sender: FDA-Public Use
  Company Number: PHHY2016DE179446

PATIENT
  Age: 87 Year
  Sex: Male
  Weight: 101 kg

DRUGS (1)
  1. ENTRESTO [Suspect]
     Active Substance: SACUBITRIL\VALSARTAN
     Indication: CARDIAC FAILURE
     Dosage: 50 MG (24/26), BID
     Route: 065
     Dates: start: 20160907

REACTIONS (1)
  - Death [Fatal]

NARRATIVE: CASE EVENT DATE: 20161028
